FAERS Safety Report 6585945-9 (Version None)
Quarter: 2010Q1

REPORT INFORMATION
  Report Type: 
  Country: None (occurrence: None)
  Receive Date: 20100217
  Receipt Date: 20100212
  Transmission Date: 20100710
  Serious: Yes (Death)
  Sender: FDA-Public Use
  Company Number: CO-ABBOTT-10P-036-0626036-00

PATIENT
  Sex: Male

DRUGS (1)
  1. KALETRA [Suspect]
     Indication: HIV INFECTION
     Dosage: 200MG/50MG EVERY 12 HOURS
     Route: 048

REACTIONS (2)
  - HISTOPLASMOSIS [None]
  - LYMPHADENOPATHY [None]
